FAERS Safety Report 11338253 (Version 1)
Quarter: 2015Q3

REPORT INFORMATION
  Report Type: Spontaneous
  Country: US (occurrence: US)
  Receive Date: 20150803
  Receipt Date: 20150803
  Transmission Date: 20151125
  Serious: No
  Sender: FDA-Public Use
  Company Number: US-ELI_LILLY_AND_COMPANY-US201008004446

PATIENT
  Sex: Male

DRUGS (1)
  1. ZYPREXA ZYDIS [Suspect]
     Active Substance: OLANZAPINE
     Indication: BIPOLAR DISORDER
     Dosage: 20 MG, UNKNOWN
     Route: 065

REACTIONS (4)
  - Intentional product misuse [Unknown]
  - Incorrect dose administered [Unknown]
  - Depression [Unknown]
  - Accident at work [Unknown]
